FAERS Safety Report 14570382 (Version 2)
Quarter: 2018Q1

REPORT INFORMATION
  Report Type: Spontaneous
  Country: US (occurrence: US)
  Receive Date: 20180226
  Receipt Date: 20180227
  Transmission Date: 20180509
  Serious: Yes (Death, Other)
  Sender: FDA-Public Use
  Company Number: US-ROCHE-2073923

PATIENT
  Age: 85 Year
  Sex: Male

DRUGS (17)
  1. FORMOTEROL [Concomitant]
     Active Substance: FORMOTEROL
     Dosage: 5 MCG-200 MCG/INH
     Route: 065
  2. ONDANSETRON [Concomitant]
     Active Substance: ONDANSETRON
     Route: 065
  3. SODIUM CHLORIDE. [Concomitant]
     Active Substance: SODIUM CHLORIDE
  4. HYDROMORPHONE [Concomitant]
     Active Substance: HYDROMORPHONE
     Dosage: 1 MG/ML
     Route: 065
  5. ESBRIET [Suspect]
     Active Substance: PIRFENIDONE
     Indication: IDIOPATHIC PULMONARY FIBROSIS
  6. MOMETASONE [Concomitant]
     Active Substance: MOMETASONE
  7. INSULIN ASPART [Concomitant]
     Active Substance: INSULIN ASPART
     Route: 065
  8. ALBUTEROL/IPRATROPIUM [Concomitant]
     Active Substance: ALBUTEROL\IPRATROPIUM
     Route: 065
  9. DEXTROSE. [Concomitant]
     Active Substance: DEXTROSE
     Dosage: 25 GM/ML
     Route: 065
  10. MAGNESIUM HYDROXIDE. [Concomitant]
     Active Substance: MAGNESIUM HYDROXIDE
     Route: 048
  11. ESBRIET [Suspect]
     Active Substance: PIRFENIDONE
     Indication: PULMONARY ARTERIAL HYPERTENSION
     Route: 048
     Dates: start: 20161129
  12. DILTIAZEM CD [Concomitant]
     Active Substance: DILTIAZEM
     Route: 065
  13. DRONEDARONE [Concomitant]
     Active Substance: DRONEDARONE
     Route: 065
  14. METFORMIN [Concomitant]
     Active Substance: METFORMIN HYDROCHLORIDE
     Route: 048
  15. ACETAMINOPHEN. [Concomitant]
     Active Substance: ACETAMINOPHEN
     Route: 048
  16. CALCIUM CARBONATE. [Concomitant]
     Active Substance: CALCIUM CARBONATE
     Route: 048
  17. GLUCAGON. [Concomitant]
     Active Substance: GLUCAGON
     Route: 065

REACTIONS (9)
  - Pneumonia [Fatal]
  - Haemoptysis [Unknown]
  - Hypoxia [Unknown]
  - Cough [Unknown]
  - Nausea [Unknown]
  - Renal impairment [Unknown]
  - Dyspnoea [Unknown]
  - Hypotension [Unknown]
  - Bradycardia [Unknown]

NARRATIVE: CASE EVENT DATE: 20180122
